FAERS Safety Report 15723553 (Version 2)
Quarter: 2019Q3

REPORT INFORMATION
  Report Type: Report from Study
  Country: BR (occurrence: BR)
  Receive Date: 20181214
  Receipt Date: 20190827
  Transmission Date: 20191004
  Serious: Yes (Hospitalization)
  Sender: FDA-Public Use
  Company Number: BR-SA-2018SA279886

PATIENT
  Age: 46 Year
  Sex: Male
  Weight: 66 kg

DRUGS (1)
  1. AGALSIDASE BETA [Suspect]
     Active Substance: AGALSIDASE BETA
     Indication: FABRY^S DISEASE
     Dosage: 2 VIALS; 1 TIME IN EVERY 15 DAYS
     Route: 041
     Dates: start: 20180622

REACTIONS (12)
  - Pyrexia [Recovered/Resolved]
  - Dyspnoea [Unknown]
  - Anaemia [Unknown]
  - Weight decreased [Recovered/Resolved]
  - Proteinuria [Not Recovered/Not Resolved]
  - Chest pain [Unknown]
  - Heart rate increased [Unknown]
  - Blood potassium increased [Recovered/Resolved]
  - Urinary tract infection [Recovered/Resolved]
  - Unevaluable event [Recovering/Resolving]
  - Malaise [Unknown]
  - Blood creatinine decreased [Recovering/Resolving]

NARRATIVE: CASE EVENT DATE: 20181004
